FAERS Safety Report 8594487-0 (Version None)
Quarter: 2012Q3

REPORT INFORMATION
  Report Type: 
  Country: None (occurrence: None)
  Receive Date: 20120815
  Receipt Date: 20120807
  Transmission Date: 20120928
  Serious: No
  Sender: FDA-Public Use
  Company Number: US-009507513-1208USA004100

PATIENT

DRUGS (3)
  1. PREDNISOLONE [Concomitant]
  2. COSOPT [Suspect]
     Indication: GLAUCOMA
     Dosage: UNK
     Route: 047
     Dates: start: 20020801
  3. COSOPT [Suspect]
     Indication: CORNEAL TRANSPLANT

REACTIONS (1)
  - EYE BURNS [None]
